FAERS Safety Report 17723574 (Version 1)
Quarter: 2020Q2

REPORT INFORMATION
  Report Type: Spontaneous
  Country: US (occurrence: US)
  Receive Date: 20200429
  Receipt Date: 20200429
  Transmission Date: 20200714
  Serious: No
  Sender: FDA-Public Use
  Company Number: US-BAUSCH-BL-2020-011872

PATIENT
  Age: 52 Year
  Sex: Female

DRUGS (2)
  1. LISINOPRIL. [Concomitant]
     Active Substance: LISINOPRIL
     Indication: PRODUCT USED FOR UNKNOWN INDICATION
     Route: 048
  2. LUMIFY [Suspect]
     Active Substance: BRIMONIDINE TARTRATE
     Indication: OCULAR HYPERAEMIA
     Dosage: ONE DROP IN EACH EYE ONCE TO TWICE DAILY AS NEEDED APPROXIMATELY ONE MONTH AGO
     Route: 047
     Dates: start: 202003, end: 2020

REACTIONS (2)
  - Ocular hyperaemia [Not Recovered/Not Resolved]
  - Symptom recurrence [Not Recovered/Not Resolved]

NARRATIVE: CASE EVENT DATE: 2020
